FAERS Safety Report 26161185 (Version 1)
Quarter: 2025Q4

REPORT INFORMATION
  Report Type: Spontaneous
  Country: US (occurrence: None)
  Receive Date: 20251216
  Receipt Date: 20251216
  Transmission Date: 20260118
  Serious: No
  Sender: ENDO
  Company Number: US-ENDO USA, INC.-2025-001528

PATIENT
  Sex: Male

DRUGS (1)
  1. XIAFLEX [Suspect]
     Active Substance: COLLAGENASE CLOSTRIDIUM HISTOLYTICUM
     Indication: Peyronie^s disease
     Dosage: 0.58 MILLIGRAM, ONCE EVERY 6WKS (1X ON 2 DAYS, 1-3 DAYS APART)

REACTIONS (5)
  - Urinary incontinence [Unknown]
  - Skin exfoliation [Unknown]
  - Penis disorder [Unknown]
  - Penile contusion [Unknown]
  - Nodule [Unknown]
